FAERS Safety Report 6980092-6 (Version None)
Quarter: 2010Q3

REPORT INFORMATION
  Report Type: 
  Country: None (occurrence: None)
  Receive Date: 20100909
  Receipt Date: 20100825
  Transmission Date: 20110219
  Serious: No
  Sender: FDA-Public Use
  Company Number: PI-04952-001

PATIENT
  Age: 70 Year
  Sex: Male

DRUGS (1)
  1. CHLORAPREP WITH TINT [Suspect]
     Indication: PREOPERATIVE CARE
     Dosage: 26ML, TWICE, TOPICAL
     Route: 061
     Dates: start: 20100810

REACTIONS (3)
  - CHEMICAL BURN OF SKIN [None]
  - CONDITION AGGRAVATED [None]
  - DECUBITUS ULCER [None]
